FAERS Safety Report 5322743-8 (Version None)
Quarter: 2007Q1

REPORT INFORMATION
  Report Type: 
  Country: None (occurrence: None)
  Receive Date: 20070223
  Receipt Date: 20061108
  Transmission Date: 20070707
  Serious: Yes (Hospitalization)
  Sender: FDA-Public Use
  Company Number: 06P-163-0338651-00

PATIENT
  Age: 60 Year
  Sex: Male

DRUGS (3)
  1. TRICOR [Suspect]
     Indication: MIXED HYPERLIPIDAEMIA
     Dosage: 160 MG, 1 IN 1 D, PER ORAL
     Route: 048
     Dates: start: 20030210, end: 20030822
  2. ACETYLSALICYLIC ACID SRT [Concomitant]
  3. ESOMEPRAZOLE MAGNESIUM [Concomitant]

REACTIONS (1)
  - PANCREATITIS [None]
